FAERS Safety Report 4594838-8 (Version None)
Quarter: 2005Q1

REPORT INFORMATION
  Report Type: 
  Country: None (occurrence: None)
  Receive Date: 20050223
  Receipt Date: 20050209
  Transmission Date: 20050727
  Serious: Yes (Other)
  Sender: FDA-Public Use
  Company Number: 212343

PATIENT
  Age: 71 Year
  Sex: Male
  Weight: 101.4 kg

DRUGS (2)
  1. AVASTIN [Suspect]
     Indication: COLORECTAL CANCER METASTATIC
     Dosage: 5 MG/KG, Q2W, INTRAVENOUS
     Route: 042
     Dates: start: 20040816, end: 20041227
  2. CHEMOTHERAPY NOS (ANTINEOPLATIC AGENT NOS) [Concomitant]

REACTIONS (3)
  - BALANCE DISORDER [None]
  - DISEASE PROGRESSION [None]
  - NEUROPATHY PERIPHERAL [None]
